FAERS Safety Report 9855341 (Version 1)
Quarter: 2014Q1

REPORT INFORMATION
  Report Type: Spontaneous
  Country: FR (occurrence: FR)
  Receive Date: 20140130
  Receipt Date: 20140130
  Transmission Date: 20141002
  Serious: Yes (Hospitalization, Other)
  Sender: FDA-Public Use
  Company Number: FR-ELI_LILLY_AND_COMPANY-FR201401006602

PATIENT
  Age: 82 Year
  Sex: Male

DRUGS (8)
  1. GEMZAR [Suspect]
     Indication: BRONCHIAL CARCINOMA
     Dosage: UNK
     Route: 042
     Dates: start: 20131202, end: 20131202
  2. XYZALL [Concomitant]
     Dosage: 5 MG, QD
  3. MODOPAR [Concomitant]
     Indication: PARKINSONISM
     Dosage: 250 MG, TID
  4. KARDEGIC [Concomitant]
     Dosage: 160 MG, QD
  5. ATENOLOL [Concomitant]
     Dosage: `50 MG, QD
  6. LANSOPRAZOLE [Concomitant]
     Dosage: 15 MG, QD
  7. VESICARE [Concomitant]
     Dosage: 5 MG, BID
  8. TRIVASTAL 50 LP [Concomitant]
     Indication: PARKINSONISM
     Dosage: 150 MG, EACH EVENING

REACTIONS (6)
  - Sepsis [Recovered/Resolved]
  - Pyrexia [Unknown]
  - Pulmonary embolism [Unknown]
  - Anaemia [Recovering/Resolving]
  - Thrombocytopenia [Recovered/Resolved]
  - Leukopenia [Recovered/Resolved]
